FAERS Safety Report 5537770-5 (Version None)
Quarter: 2007Q4

REPORT INFORMATION
  Report Type: 
  Country: None (occurrence: None)
  Receive Date: 20071207
  Receipt Date: 20071128
  Transmission Date: 20080405
  Serious: Yes (Hospitalization)
  Sender: FDA-Public Use
  Company Number: FR-ABBOTT-07P-056-0426340-00

PATIENT
  Age: 16 Year
  Sex: Male

DRUGS (2)
  1. MICROPAKINE [Suspect]
     Indication: EPILEPSY
     Route: 048
     Dates: start: 20060101, end: 20070101
  2. MICROPAKINE [Suspect]
     Route: 048
     Dates: start: 20070101

REACTIONS (2)
  - EPILEPSY [None]
  - EXPIRED DRUG ADMINISTERED [None]
